FAERS Safety Report 10179169 (Version 1)
Quarter: 2014Q2

REPORT INFORMATION
  Report Type: Spontaneous
  Country: US (occurrence: US)
  Receive Date: 20140519
  Receipt Date: 20140519
  Transmission Date: 20141212
  Serious: No
  Sender: FDA-Public Use
  Company Number: US-BAYER-2014-069607

PATIENT
  Sex: 0

DRUGS (1)
  1. ALEVE CAPLET [Suspect]
     Dosage: UNK

REACTIONS (2)
  - Extra dose administered [None]
  - Off label use [None]
